FAERS Safety Report 4528489-8 (Version None)
Quarter: 2004Q4

REPORT INFORMATION
  Report Type: 
  Country: None (occurrence: None)
  Receive Date: 20041216
  Receipt Date: 20041207
  Transmission Date: 20050328
  Serious: Yes (Other)
  Sender: FDA-Public Use
  Company Number: 200419377US

PATIENT
  Age: 58 Year
  Sex: Female

DRUGS (6)
  1. LANTUS [Suspect]
     Indication: DIABETES MELLITUS NON-INSULIN-DEPENDENT
     Dosage: DOSE UNIT: UNITS
     Route: 051
     Dates: start: 20041009
  2. GLUCOVANCE [Concomitant]
     Dosage: DOSE: UNK
  3. SYNTHROID [Concomitant]
     Indication: HYPOTHYROIDISM
  4. ALTACE [Concomitant]
     Indication: HYPERTENSION
  5. VICODIN [Concomitant]
     Indication: RHEUMATOID ARTHRITIS
     Dosage: DOSE: 7.5/750
  6. ADVIL [Concomitant]
     Indication: RHEUMATOID ARTHRITIS

REACTIONS (8)
  - BLOOD GLUCOSE DECREASED [None]
  - CONCUSSION [None]
  - CYSTITIS [None]
  - DIZZINESS [None]
  - FALL [None]
  - FEELING ABNORMAL [None]
  - HEAD INJURY [None]
  - WHITE BLOOD CELL COUNT INCREASED [None]
